FAERS Safety Report 4603117-1 (Version None)
Quarter: 2005Q1

REPORT INFORMATION
  Report Type: 
  Country: None (occurrence: None)
  Receive Date: 20050309
  Receipt Date: 20050301
  Transmission Date: 20050727
  Serious: Yes (Hospitalization)
  Sender: FDA-Public Use
  Company Number: GB-GLAXOSMITHKLINE-B0373528A

PATIENT
  Sex: Male

DRUGS (1)
  1. NIQUITIN CQ CLEAR 21MG [Suspect]
     Indication: EX-SMOKER
     Dosage: 21MG PER DAY
     Route: 062

REACTIONS (1)
  - HEART RATE IRREGULAR [None]
